FAERS Safety Report 11110296 (Version 1)
Quarter: 2015Q2

REPORT INFORMATION
  Report Type: Spontaneous
  Country: US (occurrence: None)
  Receive Date: 20150512
  Receipt Date: 20150512
  Transmission Date: 20150821
  Serious: Yes (Hospitalization, Other)
  Sender: FDA-Public Use
  Company Number: None

PATIENT
  Age: 38 Year
  Sex: Male
  Weight: 82 kg

DRUGS (2)
  1. VEMURAFENIB [Suspect]
     Active Substance: VEMURAFENIB
     Indication: LIPASE INCREASED
     Dosage: 960 MG  BID  PO
     Route: 048
     Dates: start: 20120208, end: 20120213
  2. VEMURAFENIB [Suspect]
     Active Substance: VEMURAFENIB
     Dosage: 960 MG ONCE PO
     Route: 048

REACTIONS (1)
  - Lipase increased [None]

NARRATIVE: CASE EVENT DATE: 20120213
